FAERS Safety Report 20475292 (Version 1)
Quarter: 2022Q1

REPORT INFORMATION
  Report Type: Spontaneous
  Country: US (occurrence: US)
  Receive Date: 20220215
  Receipt Date: 20220215
  Transmission Date: 20220423
  Serious: No
  Sender: FDA-Public Use
  Company Number: US-NOVARTISTESTPH-NVSC2022US033595

PATIENT
  Sex: Female

DRUGS (1)
  1. RECLAST [Suspect]
     Active Substance: ZOLEDRONIC ACID
     Indication: Product used for unknown indication
     Dosage: UNK UNK, ONCE/SINGLE
     Route: 065
     Dates: start: 20211130

REACTIONS (6)
  - Confusional state [Unknown]
  - Renal disorder [Unknown]
  - Illness [Unknown]
  - Pain [Unknown]
  - Myalgia [Unknown]
  - Pain in extremity [Unknown]
